FAERS Safety Report 5025232-3 (Version None)
Quarter: 2006Q2

REPORT INFORMATION
  Report Type: 
  Country: None (occurrence: None)
  Receive Date: 20060426
  Receipt Date: 20060128
  Transmission Date: 20061013
  Serious: Yes (Other)
  Sender: FDA-Public Use
  Company Number: 2006015693

PATIENT
  Age: 78 Year
  Sex: Female

DRUGS (13)
  1. LYRICA [Suspect]
     Indication: NEUROPATHY
     Dosage: 150 MG (75,2 IN 1 D),ORAL
     Route: 048
  2. MOBIC [Concomitant]
  3. ENALAPRIL MALEATE [Concomitant]
  4. DYAZIDE [Concomitant]
  5. GLIPIZIDE [Concomitant]
  6. BACLOFEN [Concomitant]
  7. ZETIA [Concomitant]
  8. LIPITOR [Concomitant]
  9. METFORMIN [Concomitant]
  10. MAGNESIUM (MAGNESIUM) [Concomitant]
  11. FERGON (FERROUS GLUCONATE) [Concomitant]
  12. STOOL SOFTENER (DOCUSATE SODIUM) [Concomitant]
  13. VITAMINS (VITAMINS) [Concomitant]

REACTIONS (7)
  - BLOOD GLUCOSE INCREASED [None]
  - DIZZINESS [None]
  - DRY MOUTH [None]
  - EATING DISORDER [None]
  - MALAISE [None]
  - NAUSEA [None]
  - SOMNOLENCE [None]
